FAERS Safety Report 14759998 (Version 1)
Quarter: 2018Q2

REPORT INFORMATION
  Report Type: Spontaneous
  Country: TR (occurrence: TR)
  Receive Date: 20180413
  Receipt Date: 20180413
  Transmission Date: 20180711
  Serious: Yes (Hospitalization)
  Sender: FDA-Public Use
  Company Number: TR-TEVA-2018-TR-881652

PATIENT
  Age: 24 Year
  Sex: Male

DRUGS (15)
  1. DIAZEPAM. [Concomitant]
     Active Substance: DIAZEPAM
     Dosage: 15 MILLIGRAM DAILY;
  2. RISPERIDONE. [Concomitant]
     Active Substance: RISPERIDONE
     Dosage: 2 MILLIGRAM DAILY;
  3. PROPRANOLOL [Concomitant]
     Active Substance: PROPRANOLOL HYDROCHLORIDE
     Dosage: 80 MILLIGRAM DAILY;
  4. KETIAPIN [Concomitant]
     Dosage: 25 MILLIGRAM DAILY;
  5. KETIAPIN [Concomitant]
     Dosage: 100 MILLIGRAM DAILY;
  6. MODAFINIL. [Suspect]
     Active Substance: MODAFINIL
     Dosage: 500 MILLIGRAM DAILY;
     Route: 065
  7. MODAFINIL. [Suspect]
     Active Substance: MODAFINIL
     Indication: ATTENTION DEFICIT/HYPERACTIVITY DISORDER
     Dosage: 5000 MILLIGRAM DAILY;
     Route: 065
  8. VENLAFAXINE [Concomitant]
     Active Substance: VENLAFAXINE HYDROCHLORIDE
     Dosage: 75 MILLIGRAM DAILY;
  9. OLANZAPINE. [Concomitant]
     Active Substance: OLANZAPINE
     Dosage: 5 MILLIGRAM DAILY;
  10. RISPERIDONE. [Concomitant]
     Active Substance: RISPERIDONE
     Dosage: 2 MILLIGRAM DAILY;
  11. RISPERIDONE. [Concomitant]
     Active Substance: RISPERIDONE
     Dosage: 1 MILLIGRAM DAILY;
  12. MODAFINIL. [Suspect]
     Active Substance: MODAFINIL
     Dosage: 300-400 MG/DAY DOSE DURING 2 YEARS
     Route: 065
  13. LORAZEPAM. [Concomitant]
     Active Substance: LORAZEPAM
     Dosage: 2.5 MILLIGRAM DAILY;
  14. MODAFINIL. [Suspect]
     Active Substance: MODAFINIL
     Dosage: 50 MILLIGRAM DAILY; 3 YEARS AGO
     Route: 065
  15. MODAFINIL. [Suspect]
     Active Substance: MODAFINIL
     Dosage: 1000 MILLIGRAM DAILY;
     Route: 065

REACTIONS (11)
  - Agitation [Recovering/Resolving]
  - Irritability [Recovering/Resolving]
  - Hyperhidrosis [Recovering/Resolving]
  - Tremor [Recovering/Resolving]
  - Intentional product use issue [Unknown]
  - Abnormal dreams [Recovering/Resolving]
  - Insomnia [Recovering/Resolving]
  - Anxiety [Recovering/Resolving]
  - Intentional overdose [Unknown]
  - Palpitations [Recovering/Resolving]
  - Drug dependence [Recovering/Resolving]
